FAERS Safety Report 21795625 (Version 1)
Quarter: 2022Q4

REPORT INFORMATION
  Report Type: Spontaneous
  Country: US (occurrence: None)
  Receive Date: 20221228
  Receipt Date: 20221228
  Transmission Date: 20230113
  Serious: No
  Sender: FDA-Public Use
  Company Number: None

PATIENT
  Age: 63 Year
  Sex: Female
  Weight: 81.19 kg

DRUGS (2)
  1. HUMIRA [Suspect]
     Active Substance: ADALIMUMAB
     Indication: Skin disorder
     Dosage: INJECT 40MG SUBCUTANEOUSLY EVERY 2 WEEKS AS DIRECTED.
     Route: 058
     Dates: start: 202204
  2. HUMIRA [Suspect]
     Active Substance: ADALIMUMAB
     Indication: Pruritus

REACTIONS (1)
  - Bronchitis [None]
